FAERS Safety Report 15633413 (Version 1)
Quarter: 2018Q4

REPORT INFORMATION
  Report Type: Spontaneous
  Country: US (occurrence: US)
  Receive Date: 20181113
  Receipt Date: 20181113
  Transmission Date: 20190205
  Serious: Yes (Other)
  Sender: FDA-Public Use
  Company Number: None

PATIENT
  Sex: Female

DRUGS (5)
  1. FOSAPREPITANT [Concomitant]
     Active Substance: FOSAPREPITANT
     Dates: start: 20181004
  2. PALONOSETRON. [Concomitant]
     Active Substance: PALONOSETRON HYDROCHLORIDE
     Dates: start: 20181004
  3. AZACITIDINE. [Concomitant]
     Active Substance: AZACITIDINE
     Dates: start: 20181004
  4. NORMAL SALINE [Suspect]
     Active Substance: SODIUM CHLORIDE
     Indication: MYELODYSPLASTIC SYNDROME
     Route: 041
     Dates: start: 20181004
  5. DEXAMETHASONE. [Concomitant]
     Active Substance: DEXAMETHASONE
     Dates: start: 20181004

REACTIONS (9)
  - Palpitations [None]
  - Respiratory rate increased [None]
  - Chest discomfort [None]
  - Flushing [None]
  - Blood pressure increased [None]
  - Infusion related reaction [None]
  - Oxygen saturation decreased [None]
  - Dyspnoea [None]
  - Erythema [None]

NARRATIVE: CASE EVENT DATE: 20181004
